FAERS Safety Report 7852073 (Version 6)
Quarter: 2012Q4

REPORT INFORMATION
  Report Type: Report from Study
  Country: JP (occurrence: JP)
  Receive Date: 20110311
  Receipt Date: 20121023
  Transmission Date: 20130627
  Serious: Yes (Hospitalization)
  Sender: FDA-Public Use
  Company Number: JP-ABBOTT-11P-087-0709768-00

PATIENT
  Age: 17 Year
  Sex: Female
  Weight: 47.7 kg

DRUGS (5)
  1. HUMIRA [Suspect]
     Indication: CROHN^S DISEASE
     Route: 058
     Dates: start: 20101110, end: 20101110
  2. HUMIRA [Suspect]
     Dates: start: 20101124, end: 20101124
  3. HUMIRA [Suspect]
     Dates: start: 20101209, end: 20110303
  4. MESALAZINE [Concomitant]
     Indication: CROHN^S DISEASE
     Dosage: 1000 mg daily
     Route: 048
  5. POTASSIUM CITRATE/SODIUM CITRATE HYDRATE [Concomitant]
     Indication: PRODUCT USED FOR UNKNOWN INDICATION
     Dosage: 3 gm daily
     Route: 048

REACTIONS (4)
  - Malaise [Unknown]
  - Hyperphagia [Unknown]
  - Blood creatine phosphokinase increased [Recovered/Resolved]
  - Crohn^s disease [Recovering/Resolving]
